FAERS Safety Report 22540039 (Version 1)
Quarter: 2023Q2

REPORT INFORMATION
  Report Type: Other
  Country: CN (occurrence: None)
  Receive Date: 20230609
  Receipt Date: 20230609
  Transmission Date: 20230722
  Serious: Yes (Other)
  Sender: FDA-Public Use
  Company Number: CN-ROCHE-3353424

PATIENT
  Age: 38 Year
  Sex: Male

DRUGS (6)
  1. BEVACIZUMAB [Suspect]
     Active Substance: BEVACIZUMAB
     Indication: Penile squamous cell carcinoma
     Dosage: ON DAY 1
     Route: 065
  2. TORIPALIMAB [Suspect]
     Active Substance: TORIPALIMAB
     Indication: Penile squamous cell carcinoma
     Route: 065
  3. PACLITAXEL [Suspect]
     Active Substance: PACLITAXEL
     Indication: Penile squamous cell carcinoma
     Dosage: ON DAY 1 AND DAY 8
     Route: 065
  4. CARBOPLATIN [Suspect]
     Active Substance: CARBOPLATIN
     Indication: Penile squamous cell carcinoma
     Dosage: 0.6G/M2 ON DAY 1
     Route: 065
  5. ZOLEDRONIC ACID [Suspect]
     Active Substance: ZOLEDRONIC ACID
     Indication: Penile squamous cell carcinoma
     Route: 065
  6. ZOLEDRONIC ACID [Suspect]
     Active Substance: ZOLEDRONIC ACID
     Route: 065

REACTIONS (3)
  - Granulocytopenia [Recovered/Resolved]
  - Nausea [Recovered/Resolved]
  - Off label use [Unknown]
